FAERS Safety Report 6252084-6 (Version None)
Quarter: 2009Q2

REPORT INFORMATION
  Report Type: 
  Country: None (occurrence: None)
  Receive Date: 20090630
  Receipt Date: 20050805
  Transmission Date: 20091009
  Serious: Yes (Death)
  Sender: FDA-Public Use
  Company Number: US-ROCHE-638855

PATIENT
  Sex: Male

DRUGS (5)
  1. ENFUVIRTIDE [Suspect]
     Route: 065
     Dates: start: 20050128, end: 20050228
  2. VIDEX EC [Concomitant]
     Dates: start: 20040401, end: 20050208
  3. VIREAD [Concomitant]
     Dates: start: 20040401, end: 20050228
  4. NORVIR [Concomitant]
     Dates: start: 20050128, end: 20050228
  5. BACTRIM DS [Concomitant]
     Dates: start: 20010122, end: 20050228

REACTIONS (1)
  - DEATH [None]
